FAERS Safety Report 4934242-3 (Version None)
Quarter: 2006Q1

REPORT INFORMATION
  Report Type: 
  Country: None (occurrence: None)
  Receive Date: 20060302
  Receipt Date: 20060224
  Transmission Date: 20060701
  Serious: Yes (Death, Hospitalization)
  Sender: FDA-Public Use
  Company Number: WAES 0602FRA00073

PATIENT
  Age: 65 Year
  Sex: Male

DRUGS (12)
  1. COZAAR [Suspect]
     Dosage: 25 MG/DAILY, PO
     Route: 048
  2. ETANERCEPT [Suspect]
     Indication: RHEUMATOID ARTHRITIS
     Dosage: SC
     Route: 058
     Dates: start: 20000316, end: 20000622
  3. LEFLUNOMIDE [Suspect]
     Dosage: PO
     Route: 048
     Dates: start: 20010118, end: 20040101
  4. TAB CHLORAMBUCIL [Suspect]
     Dosage: 10 MG/DAILY, PO
     Route: 048
  5. PREDNISONE TAB [Suspect]
     Dosage: 10 MG/DAILY, PO
     Route: 048
  6. TAB BISOPROLOL [Suspect]
     Dosage: 5 MG/DAILY, PO
     Route: 048
  7. TAB PRAVASTATIN [Suspect]
     Dosage: 40 MG/DAILY, PO
     Route: 048
  8. ASPIRIN [Suspect]
     Dosage: PO
     Route: 048
  9. FUROSEMIDE [Suspect]
     Dosage: 20 MG/DAILY, PO
     Route: 048
  10. OMEPRAZOLE [Suspect]
     Dosage: 20 MG/DAILY, PO
     Route: 048
  11. METHOTREXATE [Suspect]
     Dosage: 7.5 MG, PO
     Route: 048
     Dates: start: 20000715, end: 20010101
  12. INFLIXIMAB [Suspect]
     Dates: start: 20000710

REACTIONS (3)
  - BACK PAIN [None]
  - CENTRAL NERVOUS SYSTEM LYMPHOMA [None]
  - T-CELL LYMPHOMA STAGE IV [None]
